FAERS Safety Report 7714125-6 (Version None)
Quarter: 2011Q3

REPORT INFORMATION
  Report Type: 
  Country: None (occurrence: None)
  Receive Date: 20110829
  Receipt Date: 20110817
  Transmission Date: 20111222
  Serious: Yes (Other)
  Sender: FDA-Public Use
  Company Number: JP-BRISTOL-MYERS SQUIBB COMPANY-15994627

PATIENT
  Age: 68 Year
  Sex: Female
  Weight: 40 kg

DRUGS (4)
  1. REYATAZ [Suspect]
  2. RITONAVIR [Suspect]
  3. EMTRICITABINE [Suspect]
  4. TENOFOVIR DISOPROXIL FUMARATE [Suspect]

REACTIONS (2)
  - BASEDOW'S DISEASE [None]
  - DIABETES MELLITUS [None]
